FAERS Safety Report 9842911 (Version 1)
Quarter: 2013Q4

REPORT INFORMATION
  Report Type: Spontaneous
  Country: BR (occurrence: None)
  Receive Date: 20131211
  Receipt Date: 20131211
  Transmission Date: 20140711
  Serious: Yes (Other)
  Sender: FDA-Public Use
  Company Number: PRA1-2012-00005

PATIENT
  Age: 9 Year
  Sex: Male

DRUGS (3)
  1. ELAPRASE (IDURSULFASE) CONCENTRATE FOR SOLUTION FOR INFUSION [Suspect]
     Indication: MUCOPOLYSACCHARIDOSIS II
     Dosage: UNKNOWN, UNKNOWN
  2. RISPERIDONE (RISPERIDONE) [Concomitant]
  3. CARBAMAZEPINE (CARBAMAEPINE) [Concomitant]

REACTIONS (2)
  - Erythema [None]
  - Infusion related reaction [None]
